FAERS Safety Report 25675574 (Version 1)
Quarter: 2025Q3

REPORT INFORMATION
  Report Type: Spontaneous
  Country: GB (occurrence: GB)
  Receive Date: 20250813
  Receipt Date: 20250813
  Transmission Date: 20251021
  Serious: Yes (Other)
  Sender: ALCON
  Company Number: None

PATIENT
  Age: 72 Year
  Sex: Male

DRUGS (1)
  1. FLUORESCEIN SODIUM [Suspect]
     Active Substance: FLUORESCEIN SODIUM
     Indication: Angiogram retina
     Route: 065
     Dates: start: 20250708

REACTIONS (4)
  - Cardiac arrest [Recovered/Resolved]
  - Loss of consciousness [Unknown]
  - Anaphylactic reaction [Unknown]
  - Malaise [Unknown]

NARRATIVE: CASE EVENT DATE: 20250708
